FAERS Safety Report 5771375-6 (Version None)
Quarter: 2008Q2

REPORT INFORMATION
  Report Type: 
  Country: None (occurrence: None)
  Receive Date: 20080610
  Receipt Date: 20080602
  Transmission Date: 20081010
  Serious: Yes (Death)
  Sender: FDA-Public Use
  Company Number: 163-20785-08021629

PATIENT
  Age: 63 Year
  Sex: Male

DRUGS (2)
  1. THALOMID [Suspect]
     Indication: CACHEXIA
     Dosage: 100 MG, 1 IN 1 D, ORAL, 50 MG, 1 IN 1 D, ORAL
     Route: 048
     Dates: start: 20071022, end: 20071101
  2. THALOMID [Suspect]
     Indication: CACHEXIA
     Dosage: 100 MG, 1 IN 1 D, ORAL, 50 MG, 1 IN 1 D, ORAL
     Route: 048
     Dates: start: 20071207

REACTIONS (2)
  - DISEASE PROGRESSION [None]
  - GASTRIC CANCER [None]
